FAERS Safety Report 6647225-2 (Version None)
Quarter: 2010Q1

REPORT INFORMATION
  Report Type: 
  Country: None (occurrence: None)
  Receive Date: 20100323
  Receipt Date: 20100312
  Transmission Date: 20100710
  Serious: Yes (Hospitalization)
  Sender: FDA-Public Use
  Company Number: A0833948A

PATIENT
  Sex: Female
  Weight: 66.2 kg

DRUGS (17)
  1. ELTROMBOPAG [Suspect]
     Indication: THROMBOCYTOPENIA
     Dosage: 25MG PER DAY
     Route: 048
     Dates: start: 20090806, end: 20090826
  2. ELTROMBOPAG [Suspect]
     Dosage: 25MG PER DAY
     Route: 048
     Dates: start: 20090827
  3. PEG-INTRON [Suspect]
     Dosage: 100MCG WEEKLY
     Route: 058
     Dates: start: 20090827
  4. REBETOL [Suspect]
     Route: 048
     Dates: start: 20090827
  5. ADEMETIONINE [Concomitant]
     Indication: PNEUMONIA
     Route: 042
     Dates: start: 20091224
  6. POTASSIUM [Concomitant]
     Route: 042
     Dates: start: 20091223, end: 20091224
  7. MAGNESIUM [Concomitant]
     Route: 042
     Dates: start: 20091223, end: 20091224
  8. METOPROLOL TARTRATE [Concomitant]
     Route: 048
     Dates: start: 20091223, end: 20091226
  9. SYDNOPHARM [Concomitant]
     Route: 048
     Dates: start: 20091223, end: 20091226
  10. LINEX [Concomitant]
     Route: 048
     Dates: start: 20091223, end: 20091226
  11. IVABRADINE HYDROCHLORIDE [Concomitant]
     Dosage: 7.5G PER DAY
     Route: 048
     Dates: end: 20100105
  12. IVABRADINE HYDROCHLORIDE [Concomitant]
     Dosage: 3.75MG PER DAY
     Route: 048
     Dates: start: 20100106
  13. SUPRASTIN [Concomitant]
     Route: 030
     Dates: end: 20100105
  14. SODIUM THIOSULFATE [Concomitant]
     Route: 042
     Dates: end: 20100105
  15. LINEX [Concomitant]
     Dosage: 1TAB THREE TIMES PER DAY
     Route: 048
     Dates: start: 20100106, end: 20100206
  16. HYLAK-FORTE [Concomitant]
     Dosage: 40DROP THREE TIMES PER DAY
     Route: 048
     Dates: start: 20100106, end: 20100120
  17. MEZIM-FORTE [Concomitant]
     Dosage: 1TAB THREE TIMES PER DAY
     Route: 048
     Dates: start: 20100106

REACTIONS (3)
  - DYSPNOEA [None]
  - INFLUENZA [None]
  - PNEUMONIA [None]
